FAERS Safety Report 13418941 (Version 5)
Quarter: 2017Q2

REPORT INFORMATION
  Report Type: Spontaneous
  Country: JP (occurrence: JP)
  Receive Date: 20170407
  Receipt Date: 20170509
  Transmission Date: 20170830
  Serious: Yes (Hospitalization, Other)
  Sender: FDA-Public Use
  Company Number: JP-ABBVIE-17K-087-1899117-00

PATIENT
  Age: 70 Year
  Sex: Female
  Weight: 68.7 kg

DRUGS (7)
  1. AZULFIDINE [Concomitant]
     Active Substance: SULFASALAZINE
     Indication: RHEUMATOID ARTHRITIS
     Dosage: IN THE MORNING
     Route: 048
     Dates: start: 201401, end: 201611
  2. HUMIRA [Suspect]
     Active Substance: ADALIMUMAB
     Indication: RHEUMATOID ARTHRITIS
     Route: 058
     Dates: start: 20130903, end: 201611
  3. DEPAS [Suspect]
     Active Substance: ETIZOLAM
     Indication: INSOMNIA
  4. FOLIC ACID. [Concomitant]
     Active Substance: FOLIC ACID
     Indication: RHEUMATOID ARTHRITIS
     Route: 048
     Dates: start: 201307, end: 201611
  5. DEPAS [Suspect]
     Active Substance: ETIZOLAM
     Indication: ANXIETY DISORDER
     Route: 048
     Dates: end: 201611
  6. MAGMITT [Suspect]
     Active Substance: MAGNESIUM OXIDE
     Indication: CONSTIPATION
     Route: 048
  7. RHEUMATREX [Concomitant]
     Active Substance: METHOTREXATE SODIUM
     Indication: RHEUMATOID ARTHRITIS
     Route: 048
     Dates: start: 201307, end: 201611

REACTIONS (8)
  - Malaise [Unknown]
  - Lupus nephritis [Unknown]
  - Substance-induced psychotic disorder [Unknown]
  - Cardiac failure [Unknown]
  - Pleural effusion [Unknown]
  - Cardiomegaly [Unknown]
  - Renal impairment [Recovered/Resolved]
  - Renal vasculitis [Unknown]

NARRATIVE: CASE EVENT DATE: 201611
